FAERS Safety Report 9670491 (Version 1)
Quarter: 2013Q4

REPORT INFORMATION
  Report Type: Report from Study
  Country: CL (occurrence: CL)
  Receive Date: 20131106
  Receipt Date: 20131106
  Transmission Date: 20140711
  Serious: Yes (Death)
  Sender: FDA-Public Use
  Company Number: CL-ROCHE-1297324

PATIENT
  Age: 60 Year
  Sex: Female
  Weight: 67 kg

DRUGS (7)
  1. XELODA [Suspect]
     Indication: COLON CANCER
     Route: 048
     Dates: start: 20130709, end: 20131020
  2. METFORMIN [Concomitant]
     Indication: DIABETES MELLITUS
     Route: 048
     Dates: start: 2006, end: 20131025
  3. GLIBENCLAMIDE [Concomitant]
     Indication: DIABETES MELLITUS
     Route: 048
     Dates: start: 2006, end: 20131025
  4. VALSARTAN [Concomitant]
     Indication: HYPERTENSION
     Route: 048
     Dates: start: 2006, end: 20131025
  5. BUDESONIDE [Concomitant]
     Indication: ASTHMA
     Route: 065
     Dates: start: 2012, end: 20131025
  6. IPRATROPIUM BROMIDE [Concomitant]
     Indication: ASTHMA
     Route: 065
     Dates: start: 2012, end: 20131025
  7. SALBUTAMOL [Concomitant]
     Indication: ASTHMA
     Route: 065
     Dates: start: 2012, end: 20131025

REACTIONS (1)
  - Cardio-respiratory arrest [Fatal]
